FAERS Safety Report 8379944-4 (Version None)
Quarter: 2012Q2

REPORT INFORMATION
  Report Type: 
  Country: None (occurrence: None)
  Receive Date: 20120523
  Receipt Date: 20120119
  Transmission Date: 20120825
  Serious: Yes (Hospitalization)
  Sender: FDA-Public Use
  Company Number: US-BAYER-2011-041909

PATIENT
  Age: 41 Year
  Sex: Female
  Weight: 58.957 kg

DRUGS (7)
  1. YAZ [Suspect]
     Indication: UTERINE LEIOMYOMA
     Dosage: UNK
     Route: 048
     Dates: start: 20081101
  2. YAZ [Suspect]
     Indication: DYSMENORRHOEA
     Dosage: UNK
     Dates: start: 20090201, end: 20090323
  3. DOXYCYCLINE HYCLATE [DOXYCYCLINE HYCLATE] [Concomitant]
     Dosage: 100 MG, QD
     Route: 048
  4. IBUPROFEN [Concomitant]
     Dosage: 800 MG, UNK
     Route: 048
     Dates: start: 19870101
  5. AMOXICILLIN TRIHYDRATE W/CLAVULANTE POTASSIUM [Concomitant]
     Dosage: 875/125 MG BID
     Route: 048
  6. DANAZOL [Concomitant]
     Dosage: 200 MG, BID
     Route: 048
  7. ANTIBIOTICS [Concomitant]
     Dosage: UNK
     Dates: start: 19870101

REACTIONS (5)
  - EMOTIONAL DISTRESS [None]
  - PAIN IN EXTREMITY [None]
  - INJURY [None]
  - DEEP VEIN THROMBOSIS [None]
  - PAIN [None]
